FAERS Safety Report 14272045 (Version 2)
Quarter: 2018Q1

REPORT INFORMATION
  Report Type: Spontaneous
  Country: DE (occurrence: DE)
  Receive Date: 20171212
  Receipt Date: 20180125
  Transmission Date: 20180508
  Serious: Yes (Other)
  Sender: FDA-Public Use
  Company Number: GXKR2017DE005374

PATIENT
  Age: 67 Year
  Sex: Male

DRUGS (4)
  1. BISOHEXAL [Suspect]
     Active Substance: BISOPROLOL FUMARATE
     Dosage: 5 MG, QD CURRENTLY
     Route: 048
  2. PRADAXA [Concomitant]
     Active Substance: DABIGATRAN ETEXILATE MESYLATE
     Indication: PRODUCT USED FOR UNKNOWN INDICATION
     Route: 065
  3. PRADAXA [Concomitant]
     Active Substance: DABIGATRAN ETEXILATE MESYLATE
     Route: 065
  4. BISOHEXAL [Suspect]
     Active Substance: BISOPROLOL FUMARATE
     Indication: HYPERTENSION
     Dosage: 5 MG, BID, 1-0-1 DF
     Route: 048

REACTIONS (5)
  - Dizziness [Unknown]
  - Gallbladder obstruction [Recovering/Resolving]
  - Blood pressure fluctuation [Unknown]
  - Nausea [Recovering/Resolving]
  - Fatigue [Unknown]
